FAERS Safety Report 9058804 (Version 1)
Quarter: 2013Q1

REPORT INFORMATION
  Report Type: Other
  Country: US (occurrence: US)
  Receive Date: 20130204
  Receipt Date: 20130204
  Transmission Date: 20140127
  Serious: Yes (Death, Other)
  Sender: FDA-Public Use
  Company Number: US-ACTELION-A-CH2008-20745

PATIENT
  Age: 12 Year
  Sex: Female

DRUGS (1)
  1. ZAVESCA [Suspect]
     Indication: LIPIDOSIS
     Route: 048

REACTIONS (10)
  - Lipidosis [Fatal]
  - Condition aggravated [Fatal]
  - Progressive muscular atrophy [Fatal]
  - Muscular weakness [Fatal]
  - Tremor [Fatal]
  - Weight decreased [Fatal]
  - Abasia [Fatal]
  - Urinary incontinence [Fatal]
  - Intestinal perforation [Recovered/Resolved]
  - Colectomy [Recovered/Resolved]
